FAERS Safety Report 8159184-4 (Version None)
Quarter: 2012Q1

REPORT INFORMATION
  Report Type: 
  Country: None (occurrence: None)
  Receive Date: 20120223
  Receipt Date: 20120213
  Transmission Date: 20120608
  Serious: Yes (Other)
  Sender: FDA-Public Use
  Company Number: CN-MPIJNJ-2012-01059

PATIENT

DRUGS (1)
  1. VELCADE [Suspect]
     Indication: MULTIPLE MYELOMA
     Dosage: 2.0 MG, UNK
     Route: 042
     Dates: start: 20111201, end: 20120101

REACTIONS (4)
  - GASTRIC DISORDER [None]
  - HEART RATE INCREASED [None]
  - NEUROPATHY PERIPHERAL [None]
  - PYREXIA [None]
